FAERS Safety Report 23714766 (Version 2)
Quarter: 2025Q2

REPORT INFORMATION
  Report Type: Spontaneous
  Country: PT (occurrence: PT)
  Receive Date: 20240406
  Receipt Date: 20250609
  Transmission Date: 20250716
  Serious: Yes (Other)
  Sender: AUROBINDO
  Company Number: PT-PFIZER INC-202400068554

PATIENT
  Age: 9 Year
  Sex: Male

DRUGS (1)
  1. LEVETIRACETAM [Suspect]
     Active Substance: LEVETIRACETAM
     Indication: Epilepsy
     Dosage: 20 MILLIGRAM/KILOGRAM, ONCE A DAY (20 MG/KG, DAILY)
     Route: 065

REACTIONS (1)
  - Seizure [Unknown]
